FAERS Safety Report 5448538-2 (Version None)
Quarter: 2007Q3

REPORT INFORMATION
  Report Type: 
  Country: None (occurrence: None)
  Receive Date: 20070911
  Receipt Date: 20070904
  Transmission Date: 20080115
  Serious: Yes (Other)
  Sender: FDA-Public Use
  Company Number: US-ELI_LILLY_AND_COMPANY-US200709000319

PATIENT
  Age: 37 Year
  Sex: Female

DRUGS (3)
  1. HUMULIN N [Suspect]
  2. BENADRYL [Concomitant]
  3. SEPTRA [Concomitant]

REACTIONS (6)
  - BURNING SENSATION [None]
  - DYSPNOEA [None]
  - PHARYNGEAL OEDEMA [None]
  - PRURITUS [None]
  - RASH [None]
  - RASH GENERALISED [None]
